FAERS Safety Report 6018854-4 (Version None)
Quarter: 2008Q4

REPORT INFORMATION
  Report Type: 
  Country: None (occurrence: None)
  Receive Date: 20081224
  Receipt Date: 20080326
  Transmission Date: 20090506
  Serious: Yes (Disabling)
  Sender: FDA-Public Use
  Company Number: JP-PURDUE-MAG_2008_0000642

PATIENT
  Age: 43 Year
  Sex: Female

DRUGS (9)
  1. OXYCODONE HCL [Suspect]
     Indication: CANCER PAIN
     Dosage: 10 MG, DAILY
     Route: 048
     Dates: start: 20071206, end: 20071224
  2. FERROMIA                           /00023516/ [Concomitant]
     Indication: CERVIX CARCINOMA
     Dosage: 100 MG, DAILY
     Route: 048
  3. MUCOSTA [Concomitant]
     Indication: PROPHYLAXIS
     Dosage: 100 MG, DAILY
     Route: 048
  4. LOXONIN                            /00890702/ [Concomitant]
     Indication: CANCER PAIN
     Dosage: 180 MG, DAILY
     Route: 048
  5. NOVAMIN                            /00013301/ [Concomitant]
     Indication: PROPHYLAXIS
     Dosage: .15 MG, DAILY
     Route: 048
     Dates: start: 20001206, end: 20071220
  6. ADOFEED [Concomitant]
     Indication: CANCER PAIN
     Dosage: UNK, TID
     Route: 065
  7. MAG-LAX [Concomitant]
     Indication: PROPHYLAXIS
     Dosage: 990 MG, DAILY
     Route: 048
  8. PRIMPERAN                          /00041901/ [Concomitant]
     Indication: CERVIX CARCINOMA
     Route: 048
  9. OXYCODONE HCL [Suspect]
     Indication: CANCER PAIN
     Dosage: 10 MG, DAILY
     Route: 048
     Dates: start: 20071224

REACTIONS (2)
  - HYPERTENSION [None]
  - RENAL FAILURE ACUTE [None]
